FAERS Safety Report 5213889-3 (Version None)
Quarter: 2007Q1

REPORT INFORMATION
  Report Type: 
  Country: None (occurrence: None)
  Receive Date: 20070117
  Receipt Date: 20070110
  Transmission Date: 20070707
  Serious: Yes (Other)
  Sender: FDA-Public Use
  Company Number: 430053M06USA

PATIENT
  Age: 33 Year
  Sex: Female
  Weight: 84.8226 kg

DRUGS (3)
  1. NOVANTRONE [Suspect]
     Indication: MULTIPLE SCLEROSIS
     Dates: start: 20030801, end: 20050107
  2. WELLBUTRIN SR [Concomitant]
  3. LEXAPOR (ESCITALPRAM OXALATE) [Concomitant]

REACTIONS (1)
  - ACUTE PROMYELOCYTIC LEUKAEMIA [None]
